FAERS Safety Report 15203444 (Version 1)
Quarter: 2018Q3

REPORT INFORMATION
  Report Type: Spontaneous
  Country: FR (occurrence: FR)
  Receive Date: 20180726
  Receipt Date: 20180726
  Transmission Date: 20181010
  Serious: Yes (Hospitalization)
  Sender: FDA-Public Use
  Company Number: PHHY2018FR054841

PATIENT
  Age: 84 Year
  Sex: Female
  Weight: 49.7 kg

DRUGS (1)
  1. CEFTRIAXONE SODIUM. [Suspect]
     Active Substance: CEFTRIAXONE SODIUM
     Indication: LUNG DISORDER
     Dosage: 1 G, UNK
     Route: 030
     Dates: start: 20180426, end: 20180426

REACTIONS (5)
  - Dyspnoea [Recovered/Resolved]
  - Tachypnoea [Recovered/Resolved]
  - Hypoxia [Recovered/Resolved]
  - Urticaria [Recovered/Resolved]
  - Type I hypersensitivity [Recovered/Resolved]

NARRATIVE: CASE EVENT DATE: 20180426
